FAERS Safety Report 7485390-8 (Version None)
Quarter: 2011Q2

REPORT INFORMATION
  Report Type: 
  Country: None (occurrence: None)
  Receive Date: 20110517
  Receipt Date: 20110511
  Transmission Date: 20111010
  Serious: Yes (Disabling, Other)
  Sender: FDA-Public Use
  Company Number: US-B.I. PHARMACEUTICALS,INC./RIDGEFIELD-2011-BP-13050PF

PATIENT
  Sex: Female

DRUGS (7)
  1. TRAMADOL HYDROCHLORIDE [Concomitant]
     Indication: PAIN
  2. MEDICATION NOT FURTHER SPECIFIED [Concomitant]
     Indication: HYPERSENSITIVITY
  3. LYRICA [Suspect]
     Indication: NEUROPATHY PERIPHERAL
     Dosage: 500 MG
     Route: 048
     Dates: start: 20100101
  4. PREDNISONE TAB [Suspect]
  5. SINGULAIR [Concomitant]
  6. SPIRIVA [Suspect]
     Indication: CHRONIC OBSTRUCTIVE PULMONARY DISEASE
  7. HYDROCODONE [Concomitant]
     Indication: PAIN

REACTIONS (1)
  - DISABILITY [None]
